FAERS Safety Report 4899575-8 (Version None)
Quarter: 2006Q1

REPORT INFORMATION
  Report Type: 
  Country: None (occurrence: None)
  Receive Date: 20060123
  Receipt Date: 20050502
  Transmission Date: 20060701
  Serious: Yes (Other)
  Sender: FDA-Public Use
  Company Number: ENDC20050008

PATIENT
  Age: 51 Year
  Sex: Male
  Weight: 84.369 kg

DRUGS (2)
  1. ENDOCET 10MG/650MG ENDO [Suspect]
     Indication: INTERVERTEBRAL DISC PROTRUSION
     Dosage: 1 TAB Q4H PO
     Route: 048
     Dates: start: 20021201, end: 20050501
  2. ENDOCET 10MG/650MG ENDO [Suspect]
     Indication: PAIN
     Dosage: 1 TAB Q4H PO
     Route: 048
     Dates: start: 20021201, end: 20050501

REACTIONS (2)
  - DRUG DEPENDENCE [None]
  - DRUG WITHDRAWAL SYNDROME [None]
